FAERS Safety Report 9588280 (Version 1)
Quarter: 2013Q4

REPORT INFORMATION
  Report Type: Spontaneous
  Country: US (occurrence: US)
  Receive Date: 20131003
  Receipt Date: 20131003
  Transmission Date: 20140711
  Serious: No
  Sender: FDA-Public Use
  Company Number: US-AMGEN-USASP2012063270

PATIENT
  Age: 57 Year
  Sex: Female
  Weight: 77.1 kg

DRUGS (5)
  1. ENBREL [Suspect]
     Indication: PSORIATIC ARTHROPATHY
     Dosage: UNK
     Dates: start: 2011
  2. ASA [Concomitant]
     Dosage: UNK
  3. BUTRANS                            /00444001/ [Concomitant]
     Dosage: UNK
  4. KLONOPIN [Concomitant]
     Dosage: UNK
  5. TYLENOL                            /00020001/ [Concomitant]
     Dosage: UNK

REACTIONS (1)
  - Local swelling [Unknown]
